FAERS Safety Report 11896896 (Version 1)
Quarter: 2016Q1

REPORT INFORMATION
  Report Type: Spontaneous
  Country: US (occurrence: US)
  Receive Date: 20160107
  Receipt Date: 20160107
  Transmission Date: 20160526
  Serious: No
  Sender: FDA-Public Use
  Company Number: US-ALLERGAN-1514795US

PATIENT
  Sex: Female

DRUGS (2)
  1. RETINOIDS FOR TOPICAL USE IN ACNE [Concomitant]
     Indication: ACNE
     Dosage: UNK
     Dates: start: 20150720
  2. ACZONE [Suspect]
     Active Substance: DAPSONE
     Indication: ACNE
     Dosage: UNK
     Route: 061
     Dates: start: 20150720

REACTIONS (3)
  - Rash [Recovered/Resolved]
  - Skin burning sensation [Recovered/Resolved]
  - Inappropriate schedule of drug administration [Unknown]

NARRATIVE: CASE EVENT DATE: 20150729
